FAERS Safety Report 19394207 (Version 1)
Quarter: 2021Q2

REPORT INFORMATION
  Report Type: Spontaneous
  Country: US (occurrence: US)
  Receive Date: 20210609
  Receipt Date: 20210609
  Transmission Date: 20210717
  Serious: Yes (Other)
  Sender: FDA-Public Use
  Company Number: None

PATIENT
  Age: 74 Year
  Sex: Female
  Weight: 112.5 kg

DRUGS (10)
  1. LANTUS [Concomitant]
     Active Substance: INSULIN GLARGINE
  2. CIPROFLOXACIN. [Suspect]
     Active Substance: CIPROFLOXACIN
     Indication: URINARY TRACT INFECTION
     Dosage: ?          QUANTITY:1 TABLET(S);?
     Route: 048
     Dates: start: 20210604, end: 20210606
  3. FISH OIL [Concomitant]
     Active Substance: FISH OIL
  4. IRON [Concomitant]
     Active Substance: IRON
  5. METFORMIN [Concomitant]
     Active Substance: METFORMIN HYDROCHLORIDE
  6. LOSARTAN. [Concomitant]
     Active Substance: LOSARTAN
  7. METOPROLOL ER [Concomitant]
     Active Substance: METOPROLOL SUCCINATE
  8. HYDROCHOLOROTHIAZIDE [Concomitant]
     Active Substance: HYDROCHLOROTHIAZIDE
  9. VITAMIN D3 [Concomitant]
     Active Substance: CHOLECALCIFEROL
  10. MAGNESIUM [Concomitant]
     Active Substance: MAGNESIUM

REACTIONS (10)
  - Intentional product use issue [None]
  - Asthenia [None]
  - Malaise [None]
  - Dyspnoea [None]
  - Toxicity to various agents [None]
  - Gait disturbance [None]
  - Headache [None]
  - Blood pressure increased [None]
  - Near death experience [None]
  - Somnolence [None]

NARRATIVE: CASE EVENT DATE: 20210607
